FAERS Safety Report 8551298-X (Version None)
Quarter: 2012Q3

REPORT INFORMATION
  Report Type: 
  Country: None (occurrence: None)
  Receive Date: 20120730
  Receipt Date: 20111214
  Transmission Date: 20120928
  Serious: No
  Sender: FDA-Public Use
  Company Number: US-ALLERGAN-1116400US

PATIENT
  Sex: Female

DRUGS (2)
  1. LATISSE [Suspect]
     Indication: HYPOTRICHOSIS
     Dosage: UNK
     Dates: start: 20110701
  2. LATISSE [Suspect]
     Indication: MADAROSIS

REACTIONS (3)
  - EYE SWELLING [None]
  - ERYTHEMA OF EYELID [None]
  - EYELIDS PRURITUS [None]
